FAERS Safety Report 14600848 (Version 2)
Quarter: 2018Q1

REPORT INFORMATION
  Report Type: Report from Study
  Country: DE (occurrence: DE)
  Receive Date: 20180305
  Receipt Date: 20180327
  Transmission Date: 20180509
  Serious: No
  Sender: FDA-Public Use
  Company Number: DE-TAKEDA-2016TUS021975

PATIENT
  Age: 44 Year
  Sex: Female

DRUGS (3)
  1. VEDOLIZUMAB [Suspect]
     Active Substance: VEDOLIZUMAB
     Indication: CROHN^S DISEASE
     Dosage: UNK
     Route: 042
     Dates: start: 201610
  2. VEDOLIZUMAB [Suspect]
     Active Substance: VEDOLIZUMAB
     Dosage: UNK, Q8WEEKS
     Route: 042
  3. FLU VACCINATION [Suspect]
     Active Substance: INFLUENZA VIRUS VACCINE
     Indication: ANTIVIRAL PROPHYLAXIS
     Dosage: UNK
     Route: 065

REACTIONS (13)
  - Disturbance in attention [Unknown]
  - Frequent bowel movements [Unknown]
  - Confusional state [Recovered/Resolved]
  - Headache [Unknown]
  - Eye infection [Recovered/Resolved]
  - Incorrect drug administration rate [Unknown]
  - Hypothalamo-pituitary disorder [Unknown]
  - Aphasia [Unknown]
  - Discomfort [Recovered/Resolved]
  - Neck pain [Unknown]
  - Abdominal pain [Unknown]
  - Nausea [Recovered/Resolved]
  - Fatigue [Recovered/Resolved]

NARRATIVE: CASE EVENT DATE: 201610
